FAERS Safety Report 7962118-6 (Version None)
Quarter: 2011Q4

REPORT INFORMATION
  Report Type: 
  Country: None (occurrence: None)
  Receive Date: 20111207
  Receipt Date: 20111123
  Transmission Date: 20120403
  Serious: Yes (Other)
  Sender: FDA-Public Use
  Company Number: AU-ROCHE-1018663

PATIENT

DRUGS (1)
  1. METALYSE [Suspect]
     Indication: ISCHAEMIC STROKE

REACTIONS (2)
  - WRONG DRUG ADMINISTERED [None]
  - ADVERSE DRUG REACTION [None]
